FAERS Safety Report 23098666 (Version 2)
Quarter: 2023Q4

REPORT INFORMATION
  Report Type: Spontaneous
  Country: US (occurrence: US)
  Receive Date: 20231023
  Receipt Date: 20231110
  Transmission Date: 20240109
  Serious: Yes (Other)
  Sender: FDA-Public Use
  Company Number: US-BEH-2023164402

PATIENT
  Sex: Female

DRUGS (7)
  1. HUMATE-P [Suspect]
     Active Substance: HUMAN COAGULATION FACTOR VIII/VON WILLEBRAND FACTOR COMPLEX
     Indication: Von Willebrand^s disease
     Dosage: 1570 INTERNATIONAL UNIT
     Route: 042
     Dates: start: 202301
  2. HUMATE-P [Suspect]
     Active Substance: HUMAN COAGULATION FACTOR VIII/VON WILLEBRAND FACTOR COMPLEX
     Dosage: 3140 INTERNATIONAL UNIT, WITHIN 1 HOUR OF SURGERY
     Route: 042
  3. HUMATE-P [Suspect]
     Active Substance: HUMAN COAGULATION FACTOR VIII/VON WILLEBRAND FACTOR COMPLEX
     Dosage: 1570 INTERNATIONAL UNIT, BID, 12 HOUR AFTER FIRST DOSE, FOR 3 DAYS POST OPERATION
     Route: 042
  4. HUMATE-P [Suspect]
     Active Substance: HUMAN COAGULATION FACTOR VIII/VON WILLEBRAND FACTOR COMPLEX
     Dosage: 1570 INTERNATIONAL UNIT, QD FROM 4 TO 10 POST-OPERATIVE DAY
     Route: 042
  5. HUMATE-P [Suspect]
     Active Substance: HUMAN COAGULATION FACTOR VIII/VON WILLEBRAND FACTOR COMPLEX
     Dosage: 1570 INTERNATIONAL UNIT, QOD, FROM 11 TO 21 POST-OPERATIVE DAY
     Route: 042
  6. HUMATE-P [Suspect]
     Active Substance: HUMAN COAGULATION FACTOR VIII/VON WILLEBRAND FACTOR COMPLEX
     Dosage: 1200 INTERNATIONAL UNIT
     Route: 065
     Dates: start: 202309
  7. HUMATE-P [Suspect]
     Active Substance: HUMAN COAGULATION FACTOR VIII/VON WILLEBRAND FACTOR COMPLEX
     Dosage: 600 INTERNATIONAL UNIT
     Route: 065
     Dates: start: 202309

REACTIONS (1)
  - Deep vein thrombosis [Unknown]
